FAERS Safety Report 8881467 (Version 1)
Quarter: 2012Q4

REPORT INFORMATION
  Report Type: 
  Country: JP (occurrence: JP)
  Receive Date: 20121102
  Receipt Date: 20121102
  Transmission Date: 20130627
  Serious: Yes (Hospitalization)
  Sender: FDA-Public Use
  Company Number: JP-ASTELLAS-2012JP010314

PATIENT
  Age: 15 Year
  Sex: Female

DRUGS (5)
  1. PROGRAF [Suspect]
     Indication: JOINT SWELLING
     Dosage: 2 mg, Unknown/D
     Route: 065
  2. PROGRAF [Suspect]
     Indication: MYOSITIS
  3. INFLIXIMAB [Concomitant]
     Indication: CROHN^S DISEASE
     Dosage: UNK
     Route: 065
  4. PREDNISOLONE [Concomitant]
     Indication: JOINT SWELLING
     Dosage: 10 mg, Unknown/D
  5. PREDNISOLONE [Concomitant]
     Indication: MYOSITIS

REACTIONS (3)
  - Drug ineffective for unapproved indication [Unknown]
  - Joint swelling [Unknown]
  - Myositis [Unknown]
